FAERS Safety Report 7152351-8 (Version None)
Quarter: 2010Q4

REPORT INFORMATION
  Report Type: 
  Country: None (occurrence: None)
  Receive Date: 20101123
  Receipt Date: 20101108
  Transmission Date: 20110411
  Serious: Yes (Death, Life-Threatening)
  Sender: FDA-Public Use
  Company Number: AUR-APL-2010-02814

PATIENT
  Age: 61 Year
  Sex: Male

DRUGS (23)
  1. METFORMIN HCL [Suspect]
     Indication: DIABETES MELLITUS
     Dosage: 850MG-TID-ORAL
     Route: 048
     Dates: end: 20101103
  2. ANIDULAFUNGIN; PLACEBO (CODE NOT BROKEN) [Suspect]
     Indication: ASPERGILLOSIS
     Dosage: IV
     Route: 042
     Dates: start: 20101030, end: 20101101
  3. ANIDULAFUNGIN; PLACEBO (CODE NOT BROKEN) [Suspect]
     Indication: ASPERGILLOSIS
     Dosage: IV
     Route: 042
     Dates: start: 20101031
  4. VFEND POWDER FOR SOLN FOR INFUSION [Suspect]
     Indication: ASPERGILLOSIS
     Dosage: 388MG-BID-IV
     Route: 042
     Dates: start: 20101030, end: 20101101
  5. VFEND [Suspect]
     Indication: ASPERGILLOSIS
     Dosage: 200MG-BID-ORAL
     Route: 048
     Dates: start: 20101103
  6. REMERGIL [Suspect]
     Indication: DEPRESSION
     Dosage: 15MG-DAILY-
     Dates: start: 20101008, end: 20101103
  7. ACYCLOVIR [Suspect]
     Indication: PROPHYLAXIS
     Dosage: 400MG-DAILY-ORAL
     Route: 048
     Dates: start: 20101008, end: 20101103
  8. ALLOPURINOL [Suspect]
     Indication: HYPERURICAEMIA
     Dosage: 300MG-DAILY-ORAL
     Route: 048
     Dates: end: 20101103
  9. PANTOZOL [Concomitant]
  10. METOCLOPRAMIDE [Concomitant]
  11. KALINOR-BRAUSETABLETTEN EFFERVESCENT TABLET [Concomitant]
  12. NOVALGIN [Concomitant]
  13. METOHEXAL [Concomitant]
  14. CLINDAMYCIN [Concomitant]
  15. ACTRAPHANE [Concomitant]
  16. MEROPENEM [Concomitant]
  17. VANCOMYCIN [Concomitant]
  18. GRANOCYTE [Concomitant]
  19. FURORESE [Concomitant]
  20. TAZOBAC [Concomitant]
  21. NORVASC [Concomitant]
  22. JONOSTERIL [Concomitant]
  23. NEUPOGEN [Concomitant]

REACTIONS (11)
  - ACTIVATED PARTIAL THROMBOPLASTIN TIME PROLONGED [None]
  - COAGULOPATHY [None]
  - HAEMODYNAMIC INSTABILITY [None]
  - INFECTION [None]
  - NEUTROPENIA [None]
  - PAIN [None]
  - PULMONARY CONGESTION [None]
  - PULMONARY OEDEMA [None]
  - RENAL FAILURE ACUTE [None]
  - SEPSIS [None]
  - TOOTH LOSS [None]
